FAERS Safety Report 10393671 (Version 1)
Quarter: 2014Q3

REPORT INFORMATION
  Report Type: Report from Study
  Country: AU (occurrence: AU)
  Receive Date: 20140819
  Receipt Date: 20140819
  Transmission Date: 20150326
  Serious: Yes (Other)
  Sender: FDA-Public Use
  Company Number: PHHO2014AU011022

PATIENT
  Age: 84 Year
  Sex: Female
  Weight: 70 kg

DRUGS (10)
  1. VITAMIIN C [Concomitant]
     Indication: PROPHYLAXIS
     Dosage: UNK
  2. FISH OIL [Concomitant]
     Active Substance: FISH OIL
     Indication: PROPHYLAXIS
     Dosage: 1 DF, UNK
     Route: 048
  3. XALATAN [Concomitant]
     Active Substance: LATANOPROST
     Indication: DRUG THERAPY
     Dosage: UNK
     Dates: start: 20131030
  4. VITA-D [Concomitant]
     Indication: PROPHYLAXIS
     Dosage: UNK
  5. NO TREATMENT RECEIVED [Suspect]
     Active Substance: UNSPECIFIED INGREDIENT
     Indication: BREAST CANCER
     Dosage: UNK, NO TREATMENT
  6. PARACETAMOL [Suspect]
     Active Substance: ACETAMINOPHEN
     Indication: PROPHYLAXIS
     Dosage: 500 MG-1 G, QID
     Dates: start: 20120828
  7. ALENDRONATE SODIUM. [Concomitant]
     Active Substance: ALENDRONATE SODIUM
     Indication: DRUG THERAPY
     Dosage: 70 MG, QW
     Dates: end: 201407
  8. CALCIUM CARBONATE. [Concomitant]
     Active Substance: CALCIUM CARBONATE
     Indication: DRUG THERAPY
     Dosage: 1250 MG, UNK
     Dates: start: 20120828
  9. ALPHAGAN P [Concomitant]
     Active Substance: BRIMONIDINE TARTRATE
     Indication: DRUG THERAPY
     Dosage: UNK
     Dates: start: 20140718
  10. DENOSUMAB [Concomitant]
     Active Substance: DENOSUMAB
     Indication: PROPHYLAXIS
     Dosage: 60 MG, QMO
     Dates: start: 20140530

REACTIONS (1)
  - Tibia fracture [Recovered/Resolved]

NARRATIVE: CASE EVENT DATE: 20140324
